FAERS Safety Report 9511241 (Version 1)
Quarter: 2013Q3

REPORT INFORMATION
  Report Type: Spontaneous
  Country: US (occurrence: None)
  Receive Date: 20130906
  Receipt Date: 20130906
  Transmission Date: 20140515
  Serious: Yes (Hospitalization)
  Sender: FDA-Public Use
  Company Number: B0920174A

PATIENT
  Age: 42 Year
  Sex: Male

DRUGS (4)
  1. ABACAVIR SULPHATE [Suspect]
     Indication: HIV INFECTION
     Dosage: UNK/UNK/ UNKNOWN
  2. TENOFOVIR (FORMULATION UNKNOWN) (TENOFOVIR) [Suspect]
     Indication: HIV INFECTION
  3. EFAVIRENZ [Concomitant]
  4. EMTRICITABINE [Concomitant]

REACTIONS (6)
  - Rhabdomyolysis [None]
  - Muscle abscess [None]
  - Perineal abscess [None]
  - Blood culture positive [None]
  - Staphylococcal infection [None]
  - Renal failure [None]
